FAERS Safety Report 23143429 (Version 1)
Quarter: 2023Q4

REPORT INFORMATION
  Report Type: Report from Study
  Country: US (occurrence: None)
  Receive Date: 20231103
  Receipt Date: 20231103
  Transmission Date: 20240110
  Serious: Yes (Hospitalization)
  Sender: FDA-Public Use
  Company Number: US-ROCHE-3445530

PATIENT
  Age: 63 Year
  Sex: Female
  Weight: 82 kg

DRUGS (145)
  1. BEVACIZUMAB [Suspect]
     Active Substance: BEVACIZUMAB
     Indication: Colorectal cancer
     Dosage: SINGLE DOSE
     Route: 041
     Dates: start: 20221115, end: 20221115
  2. BEVACIZUMAB [Suspect]
     Active Substance: BEVACIZUMAB
     Dosage: SINGLE DOSE
     Route: 041
     Dates: start: 20221213, end: 20221213
  3. BEVACIZUMAB [Suspect]
     Active Substance: BEVACIZUMAB
     Dosage: SINGLE DOSE
     Route: 041
     Dates: start: 20221227, end: 20221227
  4. BEVACIZUMAB [Suspect]
     Active Substance: BEVACIZUMAB
     Dosage: SINGLE DOSE
     Route: 041
     Dates: start: 20230113, end: 20230113
  5. BEVACIZUMAB [Suspect]
     Active Substance: BEVACIZUMAB
     Dosage: SINGLE DOSE
     Route: 041
     Dates: start: 20230125, end: 20230125
  6. BEVACIZUMAB [Suspect]
     Active Substance: BEVACIZUMAB
     Dosage: SINGLE DOSE
     Route: 041
     Dates: start: 20230208, end: 20230208
  7. BEVACIZUMAB [Suspect]
     Active Substance: BEVACIZUMAB
     Dosage: SINGLE DOSE
     Route: 041
     Dates: start: 20230222, end: 20230222
  8. BEVACIZUMAB [Suspect]
     Active Substance: BEVACIZUMAB
     Dosage: SINGLE DOSE
     Route: 041
     Dates: start: 20230308, end: 20230308
  9. BEVACIZUMAB [Suspect]
     Active Substance: BEVACIZUMAB
     Dosage: SINGLE DOSE
     Route: 041
     Dates: start: 20230322, end: 20230322
  10. ETRUMADENANT [Suspect]
     Active Substance: ETRUMADENANT
     Indication: Colorectal cancer
     Dosage: SINGLE DOSE
     Route: 048
     Dates: start: 20221115, end: 20221212
  11. ETRUMADENANT [Suspect]
     Active Substance: ETRUMADENANT
     Dosage: SINGLE DOSE
     Route: 048
     Dates: start: 20221116, end: 20221212
  12. ETRUMADENANT [Suspect]
     Active Substance: ETRUMADENANT
     Dosage: SINGLE DOSE
     Route: 048
     Dates: start: 20221212, end: 20221212
  13. ETRUMADENANT [Suspect]
     Active Substance: ETRUMADENANT
     Dosage: SINGLE DOSE
     Route: 048
     Dates: start: 20221213, end: 20230110
  14. ETRUMADENANT [Suspect]
     Active Substance: ETRUMADENANT
     Dosage: SINGLE DOSE
     Route: 048
     Dates: start: 20221214, end: 20230110
  15. ETRUMADENANT [Suspect]
     Active Substance: ETRUMADENANT
     Dosage: SINGLE DOSE
     Route: 048
     Dates: start: 20221216, end: 20230110
  16. ETRUMADENANT [Suspect]
     Active Substance: ETRUMADENANT
     Dosage: SINGLE DOSE
     Route: 048
     Dates: start: 20221226, end: 20230110
  17. ETRUMADENANT [Suspect]
     Active Substance: ETRUMADENANT
     Dosage: SINGLE DOSE
     Route: 048
     Dates: start: 20221227, end: 20230110
  18. ETRUMADENANT [Suspect]
     Active Substance: ETRUMADENANT
     Dosage: SINGLE DOSE
     Route: 048
     Dates: start: 20221228, end: 20230110
  19. ETRUMADENANT [Suspect]
     Active Substance: ETRUMADENANT
     Dosage: SINGLE DOSE
     Route: 048
     Dates: start: 20230110, end: 20230110
  20. ETRUMADENANT [Suspect]
     Active Substance: ETRUMADENANT
     Dosage: SINGLE DOSE
     Route: 048
     Dates: start: 20230111, end: 20230206
  21. ETRUMADENANT [Suspect]
     Active Substance: ETRUMADENANT
     Dosage: SINGLE DOSE
     Route: 048
     Dates: start: 20230112, end: 20230206
  22. ETRUMADENANT [Suspect]
     Active Substance: ETRUMADENANT
     Dosage: SINGLE DOSE
     Route: 048
     Dates: start: 20230113, end: 20230206
  23. ETRUMADENANT [Suspect]
     Active Substance: ETRUMADENANT
     Dosage: SINGLE DOSE
     Route: 048
     Dates: start: 20230114, end: 20230206
  24. ETRUMADENANT [Suspect]
     Active Substance: ETRUMADENANT
     Dosage: SINGLE DOSE
     Route: 048
     Dates: start: 20230124, end: 20230206
  25. ETRUMADENANT [Suspect]
     Active Substance: ETRUMADENANT
     Dosage: SINGLE DOSE
     Route: 048
     Dates: start: 20230125, end: 20230206
  26. ETRUMADENANT [Suspect]
     Active Substance: ETRUMADENANT
     Dosage: SINGLE DOSE
     Route: 048
     Dates: start: 20230126, end: 20230206
  27. ETRUMADENANT [Suspect]
     Active Substance: ETRUMADENANT
     Dosage: SINGLE DOSE
     Route: 048
     Dates: start: 20230206, end: 20230206
  28. ETRUMADENANT [Suspect]
     Active Substance: ETRUMADENANT
     Dosage: SINGLE DOSE
     Route: 048
     Dates: start: 20230208, end: 20230307
  29. ETRUMADENANT [Suspect]
     Active Substance: ETRUMADENANT
     Dosage: SINGLE DOSE
     Route: 048
     Dates: start: 20230209, end: 20230307
  30. ETRUMADENANT [Suspect]
     Active Substance: ETRUMADENANT
     Dosage: SINGLE DOSE
     Route: 048
     Dates: start: 20230221, end: 20230307
  31. ETRUMADENANT [Suspect]
     Active Substance: ETRUMADENANT
     Dosage: SINGLE DOSE
     Route: 048
     Dates: start: 20230222, end: 20230307
  32. ETRUMADENANT [Suspect]
     Active Substance: ETRUMADENANT
     Dosage: SINGLE DOSE
     Route: 048
     Dates: start: 20230223, end: 20230307
  33. ETRUMADENANT [Suspect]
     Active Substance: ETRUMADENANT
     Dosage: SINGLE DOSE
     Route: 048
     Dates: start: 20230307, end: 20230307
  34. ETRUMADENANT [Suspect]
     Active Substance: ETRUMADENANT
     Dosage: SINGLE DOSE
     Route: 048
     Dates: start: 20230308, end: 20230322
  35. ETRUMADENANT [Suspect]
     Active Substance: ETRUMADENANT
     Dosage: SINGLE DOSE
     Route: 048
     Dates: start: 20230319, end: 20230322
  36. ETRUMADENANT [Suspect]
     Active Substance: ETRUMADENANT
     Dosage: SINGLE DOSE
     Route: 048
     Dates: start: 20230321, end: 20230322
  37. ETRUMADENANT [Suspect]
     Active Substance: ETRUMADENANT
     Dosage: SINGLE DOSE
     Route: 048
     Dates: start: 20230322, end: 20230322
  38. ETRUMADENANT [Suspect]
     Active Substance: ETRUMADENANT
     Dosage: SINGLE DOSE
     Route: 048
     Dates: start: 20230503, end: 20230503
  39. ETRUMADENANT [Suspect]
     Active Substance: ETRUMADENANT
     Dosage: SINGLE DOSE
     Route: 048
     Dates: start: 20230705
  40. ETRUMADENANT [Suspect]
     Active Substance: ETRUMADENANT
     Dosage: SINGLE DOSE
     Route: 048
     Dates: start: 20230718, end: 20230718
  41. ETRUMADENANT [Suspect]
     Active Substance: ETRUMADENANT
     Dosage: SINGLE DOSE
     Route: 048
     Dates: start: 20230719, end: 20230719
  42. ZIMBERELIMAB [Suspect]
     Active Substance: ZIMBERELIMAB
     Indication: Colorectal cancer
     Dosage: SINGLE DOSE
     Route: 041
     Dates: start: 20221115, end: 20221115
  43. ZIMBERELIMAB [Suspect]
     Active Substance: ZIMBERELIMAB
     Dosage: SINGLE DOSE
     Route: 041
     Dates: start: 20221213, end: 20221213
  44. ZIMBERELIMAB [Suspect]
     Active Substance: ZIMBERELIMAB
     Dosage: SINGLE DOSE
     Route: 041
     Dates: start: 20230111, end: 20230111
  45. ZIMBERELIMAB [Suspect]
     Active Substance: ZIMBERELIMAB
     Dosage: SINGLE DOSE
     Route: 041
     Dates: start: 20230208, end: 20230208
  46. ZIMBERELIMAB [Suspect]
     Active Substance: ZIMBERELIMAB
     Dosage: SINGLE DOSE
     Route: 041
     Dates: start: 20230308, end: 20230308
  47. ZIMBERELIMAB [Suspect]
     Active Substance: ZIMBERELIMAB
     Dosage: SINGLE DOSE
     Route: 041
  48. ZIMBERELIMAB [Suspect]
     Active Substance: ZIMBERELIMAB
     Dosage: SINGLE DOSE
     Route: 041
     Dates: start: 20230517, end: 20230517
  49. ZIMBERELIMAB [Suspect]
     Active Substance: ZIMBERELIMAB
     Dosage: SINGLE DOSE
     Route: 041
     Dates: start: 20230621, end: 20230621
  50. ZIMBERELIMAB [Suspect]
     Active Substance: ZIMBERELIMAB
     Dosage: SINGLE DOSE
     Route: 041
     Dates: start: 20230719, end: 20230719
  51. LEUCOVORIN [Suspect]
     Active Substance: LEUCOVORIN\LEUCOVORIN CALCIUM
     Indication: Colorectal cancer
     Dosage: SINGLE DOSE
     Route: 041
     Dates: start: 20221115, end: 20221115
  52. LEUCOVORIN [Suspect]
     Active Substance: LEUCOVORIN\LEUCOVORIN CALCIUM
     Dosage: SINGLE DOSE
     Route: 041
     Dates: start: 20221213, end: 20221213
  53. LEUCOVORIN [Suspect]
     Active Substance: LEUCOVORIN\LEUCOVORIN CALCIUM
     Dosage: SINGLE DOSE
     Route: 041
     Dates: start: 20221227, end: 20221227
  54. LEUCOVORIN [Suspect]
     Active Substance: LEUCOVORIN\LEUCOVORIN CALCIUM
     Dosage: SINGLE DOSE
     Route: 041
     Dates: start: 20230111, end: 20230111
  55. LEUCOVORIN [Suspect]
     Active Substance: LEUCOVORIN\LEUCOVORIN CALCIUM
     Dosage: SINGLE DOSE
     Route: 041
     Dates: start: 20230125, end: 20230125
  56. LEUCOVORIN [Suspect]
     Active Substance: LEUCOVORIN\LEUCOVORIN CALCIUM
     Dosage: SINGLE DOSE
     Route: 041
     Dates: start: 20230208, end: 20230208
  57. LEUCOVORIN [Suspect]
     Active Substance: LEUCOVORIN\LEUCOVORIN CALCIUM
     Dosage: SINGLE DOSE
     Route: 041
     Dates: start: 20230222, end: 20230222
  58. LEUCOVORIN [Suspect]
     Active Substance: LEUCOVORIN\LEUCOVORIN CALCIUM
     Dosage: SINGLE DOSE
     Route: 041
     Dates: start: 20230308, end: 20230308
  59. LEUCOVORIN [Suspect]
     Active Substance: LEUCOVORIN\LEUCOVORIN CALCIUM
     Dosage: SINGLE DOSE
     Route: 041
     Dates: start: 20230322, end: 20230322
  60. LEUCOVORIN [Suspect]
     Active Substance: LEUCOVORIN\LEUCOVORIN CALCIUM
     Dosage: SINGLE DOSE
     Route: 041
     Dates: start: 20230419, end: 20230419
  61. LEUCOVORIN [Suspect]
     Active Substance: LEUCOVORIN\LEUCOVORIN CALCIUM
     Dosage: SINGLE DOSE
     Route: 041
     Dates: start: 20230503, end: 20230503
  62. LEUCOVORIN [Suspect]
     Active Substance: LEUCOVORIN\LEUCOVORIN CALCIUM
     Dosage: SINGLE DOSE
     Route: 041
     Dates: start: 20230517, end: 20230517
  63. LEUCOVORIN [Suspect]
     Active Substance: LEUCOVORIN\LEUCOVORIN CALCIUM
     Dosage: SINGLE DOSE
     Route: 041
     Dates: start: 20230531, end: 20230531
  64. FLUOROURACIL [Suspect]
     Active Substance: FLUOROURACIL
     Indication: Colorectal cancer
     Dosage: SINGLE DOSE
     Route: 041
     Dates: start: 20221115, end: 20221115
  65. FLUOROURACIL [Suspect]
     Active Substance: FLUOROURACIL
     Dosage: SINGLE DOSE
     Route: 040
     Dates: start: 20221115, end: 20221115
  66. FLUOROURACIL [Suspect]
     Active Substance: FLUOROURACIL
     Dosage: SINGLE DOSE
     Route: 041
     Dates: start: 20221213, end: 20221213
  67. FLUOROURACIL [Suspect]
     Active Substance: FLUOROURACIL
     Dosage: SINGLE DOSE
     Route: 040
     Dates: start: 20221213, end: 20221213
  68. FLUOROURACIL [Suspect]
     Active Substance: FLUOROURACIL
     Dosage: SINGLE DOSE
     Route: 041
     Dates: start: 20221227, end: 20221227
  69. FLUOROURACIL [Suspect]
     Active Substance: FLUOROURACIL
     Dosage: SINGLE DOSE
     Route: 040
     Dates: start: 20221227, end: 20221227
  70. FLUOROURACIL [Suspect]
     Active Substance: FLUOROURACIL
     Dosage: SINGLE DOSE
     Route: 041
     Dates: start: 20230111, end: 20230111
  71. FLUOROURACIL [Suspect]
     Active Substance: FLUOROURACIL
     Dosage: SINGLE DOSE
     Route: 040
     Dates: start: 20230111, end: 20230111
  72. FLUOROURACIL [Suspect]
     Active Substance: FLUOROURACIL
     Dosage: SINGLE DOSE
     Route: 041
     Dates: start: 20230125, end: 20230125
  73. FLUOROURACIL [Suspect]
     Active Substance: FLUOROURACIL
     Dosage: SINGLE DOSE
     Route: 040
     Dates: start: 20230125, end: 20230125
  74. FLUOROURACIL [Suspect]
     Active Substance: FLUOROURACIL
     Dosage: SINGLE DOSE
     Route: 040
     Dates: start: 20230208, end: 20230208
  75. FLUOROURACIL [Suspect]
     Active Substance: FLUOROURACIL
     Dosage: SINGLE DOSE
     Route: 041
     Dates: start: 20230222, end: 20230222
  76. FLUOROURACIL [Suspect]
     Active Substance: FLUOROURACIL
     Dosage: SINGLE DOSE
     Route: 040
     Dates: start: 20230222, end: 20230222
  77. FLUOROURACIL [Suspect]
     Active Substance: FLUOROURACIL
     Dosage: SINGLE DOSE
     Route: 041
     Dates: start: 20230308, end: 20230308
  78. FLUOROURACIL [Suspect]
     Active Substance: FLUOROURACIL
     Dosage: SINGLE DOSE
     Route: 040
     Dates: start: 20230308, end: 20230308
  79. FLUOROURACIL [Suspect]
     Active Substance: FLUOROURACIL
     Dosage: SINGLE DOSE
     Route: 041
     Dates: start: 20230322, end: 20230322
  80. FLUOROURACIL [Suspect]
     Active Substance: FLUOROURACIL
     Dosage: SINGLE DOSE
     Route: 040
     Dates: start: 20230322, end: 20230322
  81. FLUOROURACIL [Suspect]
     Active Substance: FLUOROURACIL
     Dosage: SINGLE DOSE
     Route: 041
     Dates: start: 20230419, end: 20230419
  82. FLUOROURACIL [Suspect]
     Active Substance: FLUOROURACIL
     Dosage: SINGLE DOSE
     Route: 040
     Dates: start: 20230419, end: 20230419
  83. FLUOROURACIL [Suspect]
     Active Substance: FLUOROURACIL
     Dosage: SINGLE DOSE
     Route: 041
     Dates: start: 20230503, end: 20230503
  84. FLUOROURACIL [Suspect]
     Active Substance: FLUOROURACIL
     Dosage: SINGLE DOSE
     Route: 041
     Dates: start: 20230517, end: 20230517
  85. FLUOROURACIL [Suspect]
     Active Substance: FLUOROURACIL
     Dosage: SINGLE DOSE
     Route: 040
     Dates: start: 20230517, end: 20230517
  86. FLUOROURACIL [Suspect]
     Active Substance: FLUOROURACIL
     Dosage: SINGLE DOSE
     Route: 041
     Dates: start: 20230531, end: 20230531
  87. FLUOROURACIL [Suspect]
     Active Substance: FLUOROURACIL
     Dosage: SINGLE DOSE
     Route: 040
     Dates: start: 20230531, end: 20230531
  88. FLUOROURACIL [Suspect]
     Active Substance: FLUOROURACIL
     Dosage: SINGLE DOSE
     Route: 041
     Dates: start: 20230719, end: 20230719
  89. FLUOROURACIL [Suspect]
     Active Substance: FLUOROURACIL
     Dosage: SINGLE DOSE
     Route: 040
     Dates: start: 20230719, end: 20230719
  90. OXALIPLATIN [Suspect]
     Active Substance: OXALIPLATIN
     Indication: Colorectal cancer
     Route: 041
     Dates: start: 20221115, end: 20221115
  91. OXALIPLATIN [Suspect]
     Active Substance: OXALIPLATIN
     Route: 041
     Dates: start: 20221213, end: 20221213
  92. OXALIPLATIN [Suspect]
     Active Substance: OXALIPLATIN
     Route: 041
     Dates: start: 20221227, end: 20221227
  93. OXALIPLATIN [Suspect]
     Active Substance: OXALIPLATIN
     Route: 041
     Dates: start: 20230113, end: 20230113
  94. OXALIPLATIN [Suspect]
     Active Substance: OXALIPLATIN
     Route: 041
     Dates: start: 20230125, end: 20230125
  95. OXALIPLATIN [Suspect]
     Active Substance: OXALIPLATIN
     Route: 041
     Dates: start: 20230208, end: 20230208
  96. OXALIPLATIN [Suspect]
     Active Substance: OXALIPLATIN
     Route: 041
     Dates: start: 20230222, end: 20230222
  97. OXALIPLATIN [Suspect]
     Active Substance: OXALIPLATIN
     Route: 041
     Dates: start: 20230308, end: 20230308
  98. OXALIPLATIN [Suspect]
     Active Substance: OXALIPLATIN
     Route: 041
     Dates: start: 20230322, end: 20230322
  99. OXALIPLATIN [Suspect]
     Active Substance: OXALIPLATIN
     Route: 041
     Dates: start: 20230419, end: 20230419
  100. OXALIPLATIN [Suspect]
     Active Substance: OXALIPLATIN
     Route: 041
     Dates: start: 20230503, end: 20230503
  101. OXALIPLATIN [Suspect]
     Active Substance: OXALIPLATIN
     Route: 041
     Dates: start: 20230517, end: 20230517
  102. ATENOLOL [Concomitant]
     Active Substance: ATENOLOL
     Dates: start: 20130701
  103. IBUPROFEN [Concomitant]
     Active Substance: IBUPROFEN
     Dates: start: 2012
  104. TEA LEAF [Concomitant]
     Active Substance: TEA LEAF
  105. FISH OIL [Concomitant]
     Active Substance: FISH OIL
     Dates: start: 2022, end: 20230203
  106. VITAMIN C [Concomitant]
     Active Substance: ASCORBIC ACID
  107. VITAMIN D3 [Concomitant]
     Active Substance: CHOLECALCIFEROL
     Dates: start: 20210701
  108. IMODIUM [Concomitant]
     Active Substance: LOPERAMIDE HYDROCHLORIDE
     Dates: start: 20221116, end: 20221116
  109. LOMOTIL [Concomitant]
     Active Substance: ATROPINE SULFATE\DIPHENOXYLATE HYDROCHLORIDE
     Dates: start: 20221117, end: 20221117
  110. ONDANSETRON [Concomitant]
     Active Substance: ONDANSETRON
     Dates: start: 20221116
  111. PALONOSETRON [Concomitant]
     Active Substance: PALONOSETRON
     Dates: start: 20221115, end: 20230322
  112. DEXAMETHASONE [Concomitant]
     Active Substance: DEXAMETHASONE
     Dates: start: 20221115, end: 20221115
  113. GLYCERIN [Concomitant]
     Active Substance: GLYCERIN
     Dates: start: 20221119
  114. FILGRASTIM [Concomitant]
     Active Substance: FILGRASTIM
     Dates: start: 20221130, end: 20230310
  115. LIDOCAINE\PRILOCAINE [Concomitant]
     Active Substance: LIDOCAINE\PRILOCAINE
     Dates: start: 20221130
  116. BENADRYL [Concomitant]
     Active Substance: DIPHENHYDRAMINE HYDROCHLORIDE
     Dates: start: 20221201, end: 20230401
  117. VALIUM [Concomitant]
     Active Substance: DIAZEPAM
     Dates: start: 20221208, end: 20221208
  118. FAMOTIDINE [Concomitant]
     Active Substance: FAMOTIDINE
     Dates: start: 20221213, end: 20221213
  119. DIPHENHYDRAMINE [Concomitant]
     Active Substance: DIPHENHYDRAMINE
     Dates: start: 20221213, end: 20221213
  120. SOLU-CORTEF [Concomitant]
     Active Substance: HYDROCORTISONE SODIUM SUCCINATE
     Dates: start: 20221213, end: 20221213
  121. PEGFILGRASTIM [Concomitant]
     Active Substance: PEGFILGRASTIM
     Dates: start: 20221215, end: 20230310
  122. PHENOL [Concomitant]
     Active Substance: PHENOL
     Dates: start: 20230115
  123. XYLITOL [Concomitant]
     Active Substance: XYLITOL
     Dates: start: 20230115
  124. FLUCONAZOLE [Concomitant]
     Active Substance: FLUCONAZOLE
     Dates: start: 20230125
  125. METOCLOPRAMIDE [Concomitant]
     Active Substance: METOCLOPRAMIDE
     Dates: start: 20230125, end: 20230125
  126. GABAPENTIN [Concomitant]
     Active Substance: GABAPENTIN
     Dates: start: 20230209
  127. TOLNAFTATE [Concomitant]
     Active Substance: TOLNAFTATE
     Dates: start: 20230227, end: 20230301
  128. SODIUM CHLORIDE [Concomitant]
     Active Substance: SODIUM CHLORIDE
     Dates: start: 20230308
  129. SALINE [Concomitant]
     Active Substance: SODIUM CHLORIDE
     Dates: start: 20230120, end: 20230322
  130. VALACYCLOVIR HYDROCHLORIDE [Concomitant]
     Active Substance: VALACYCLOVIR HYDROCHLORIDE
     Dates: start: 20230110, end: 20230124
  131. METAMUCIL [Concomitant]
     Active Substance: PLANTAGO SEED
     Dates: start: 20230125
  132. NYSTATIN [Concomitant]
     Active Substance: NYSTATIN
     Dates: start: 20230110, end: 20230117
  133. ORAGEL [CETYLPYRIDINIUM CHLORIDE;CHOLINE SALICYLATE] [Concomitant]
     Dates: start: 20221223
  134. MOUTH WASH [Concomitant]
     Dates: start: 20230118, end: 20230125
  135. GOLD BOND ORIGINAL STRENGTH POWDER [Concomitant]
     Active Substance: MENTHOL\ZINC OXIDE
     Dates: start: 20230226, end: 20230227
  136. MELATONIN [Concomitant]
     Active Substance: MELATONIN
     Dates: start: 20230323, end: 20230325
  137. KCL [Concomitant]
     Active Substance: POTASSIUM CHLORIDE
     Dates: start: 20230324, end: 20230325
  138. TRAMADOL [Concomitant]
     Active Substance: TRAMADOL\TRAMADOL HYDROCHLORIDE
     Dates: start: 20230328
  139. TYLENOL [Concomitant]
     Active Substance: ACETAMINOPHEN
     Dates: start: 20230402
  140. KRILL OIL [Concomitant]
     Active Substance: DIETARY SUPPLEMENT\KRILL OIL
     Dates: start: 20230405
  141. MAGNESIUM;ZINC [Concomitant]
     Dates: start: 20230405
  142. MICONAZOLE [Concomitant]
     Active Substance: MICONAZOLE
  143. NEULASTA [Concomitant]
     Active Substance: PEGFILGRASTIM
  144. SULFAMETHOXAZOLE\TRIMETHOPRIM [Concomitant]
     Active Substance: SULFAMETHOXAZOLE\TRIMETHOPRIM
     Dates: start: 20230507, end: 20230514
  145. IRON SUCROSE [Concomitant]
     Active Substance: IRON SUCROSE
     Dates: start: 20230508, end: 20230508

REACTIONS (4)
  - Leukocytosis [Recovered/Resolved]
  - Disseminated intravascular coagulation [Recovered/Resolved]
  - Acute kidney injury [Recovered/Resolved]
  - Disseminated intravascular coagulation [Recovered/Resolved]

NARRATIVE: CASE EVENT DATE: 20230322
